FAERS Safety Report 18530869 (Version 1)
Quarter: 2020Q4

REPORT INFORMATION
  Report Type: Spontaneous
  Country: PL (occurrence: PL)
  Receive Date: 20201121
  Receipt Date: 20201121
  Transmission Date: 20210114
  Serious: Yes (Hospitalization)
  Sender: FDA-Public Use
  Company Number: NVSC2020PL307920

PATIENT
  Age: 61 Year
  Sex: Male

DRUGS (16)
  1. FUROSEMIDE. [Suspect]
     Active Substance: FUROSEMIDE
     Dosage: UNK, (1X2 TABLETS IN THE MORNING)
     Route: 065
  2. KALIPOZ PROLONGATE [Suspect]
     Active Substance: POTASSIUM CHLORIDE
     Indication: PRODUCT USED FOR UNKNOWN INDICATION
     Dosage: UNK, (1X1 TABLET IN THE MORNING)
     Route: 065
  3. ENTRESTO [Suspect]
     Active Substance: SACUBITRIL\VALSARTAN
     Indication: PRODUCT USED FOR UNKNOWN INDICATION
     Dosage: UNK, (24 / 26MG 2X1 TABLETS)
     Route: 065
  4. SPIRONOLACTONE. [Suspect]
     Active Substance: SPIRONOLACTONE
     Indication: PRODUCT USED FOR UNKNOWN INDICATION
     Dosage: UNK, (1X1 TABLET IN THE MORNING)
     Route: 065
  5. RAMIPRIL. [Suspect]
     Active Substance: RAMIPRIL
     Indication: PRODUCT USED FOR UNKNOWN INDICATION
     Dosage: UNK, (1X2.5MG AT NIGHT)
     Route: 065
  6. TORASEMIDE [Suspect]
     Active Substance: TORSEMIDE
     Indication: PRODUCT USED FOR UNKNOWN INDICATION
     Dosage: 10 MG, (1X1 TABLET AT NOON)
     Route: 065
  7. IVABRADINE [Suspect]
     Active Substance: IVABRADINE
     Indication: PRODUCT USED FOR UNKNOWN INDICATION
     Dosage: UNK, (2X 2.5MG)
     Route: 065
  8. KALIPOZ PROLONGATE [Suspect]
     Active Substance: POTASSIUM CHLORIDE
     Dosage: UNK, (3X1 TABLET)
     Route: 065
  9. FUROSEMIDE. [Suspect]
     Active Substance: FUROSEMIDE
     Dosage: UNK, (2 PLUS 2 PLUS 0 TABLETS)
     Route: 065
  10. HYDROCHLOORTHIAZIDE [Suspect]
     Active Substance: HYDROCHLOROTHIAZIDE
     Indication: PRODUCT USED FOR UNKNOWN INDICATION
     Dosage: UNK, (1X1 TABLET IN THE MORNING)
     Route: 065
  11. BISOPROLOL [Suspect]
     Active Substance: BISOPROLOL
     Indication: PRODUCT USED FOR UNKNOWN INDICATION
     Dosage: UNK, (1X10MG)
     Route: 065
  12. IVABRADINE [Suspect]
     Active Substance: IVABRADINE
     Dosage: UNK, (2X5MG)
     Route: 065
  13. HYDROCHLOORTHIAZIDE [Suspect]
     Active Substance: HYDROCHLOROTHIAZIDE
     Dosage: UNK, (1X25MG AT NOON)
     Route: 065
  14. FUROSEMIDE. [Suspect]
     Active Substance: FUROSEMIDE
     Indication: PRODUCT USED FOR UNKNOWN INDICATION
     Dosage: UNK, (1X1 TABLET IN THE MORNING)
     Route: 065
  15. SPIRONOLACTONE. [Suspect]
     Active Substance: SPIRONOLACTONE
     Dosage: 50 MG, QD
     Route: 065
  16. RAMIPRIL. [Suspect]
     Active Substance: RAMIPRIL
     Dosage: UNK, 1X ? TABLET (DUE TO LOW RR VALUES)
     Route: 065

REACTIONS (8)
  - Oedema peripheral [Unknown]
  - Weight decreased [Recovering/Resolving]
  - Cardiac failure chronic [Recovering/Resolving]
  - Dyspnoea at rest [Unknown]
  - Ascites [Unknown]
  - Pleural effusion [Unknown]
  - Blood pressure systolic decreased [Recovering/Resolving]
  - General physical health deterioration [Unknown]

NARRATIVE: CASE EVENT DATE: 201908
